FAERS Safety Report 7471404-8 (Version None)
Quarter: 2011Q2

REPORT INFORMATION
  Report Type: 
  Country: None (occurrence: None)
  Receive Date: 20110511
  Receipt Date: 20101209
  Transmission Date: 20111010
  Serious: Yes (Other)
  Sender: FDA-Public Use
  Company Number: US-BAYER-201038766NA

PATIENT
  Age: 34 Year
  Sex: Female

DRUGS (1)
  1. ULTRAVIST 150 [Suspect]
     Indication: ANGIOGRAM
     Dosage: USING POWER INJECTOR @ RATE OF 2.5 CC/SECOND
     Route: 042
     Dates: start: 20101019, end: 20101019

REACTIONS (5)
  - URTICARIA [None]
  - DYSPNOEA [None]
  - ERYTHEMA [None]
  - PRURITUS [None]
  - FLUSHING [None]
